FAERS Safety Report 8783327 (Version 2)
Quarter: 2012Q4

REPORT INFORMATION
  Report Type: 
  Country: CN (occurrence: CN)
  Receive Date: 20120913
  Receipt Date: 20121105
  Transmission Date: 20130627
  Serious: Yes (Other)
  Sender: FDA-Public Use
  Company Number: CN-JNJFOC-20120902921

PATIENT
  Age: 2 Year
  Sex: Male
  Weight: 14.5 kg

DRUGS (2)
  1. CHILDREN^S MOTRIN [Suspect]
     Route: 048
  2. CHILDREN^S MOTRIN [Suspect]
     Indication: PYREXIA
     Dosage: 4 ml
     Route: 048
     Dates: start: 20120905, end: 20120905

REACTIONS (1)
  - Hypersensitivity [Recovered/Resolved]
